FAERS Safety Report 5277772-X (Version None)
Quarter: 2007Q1

REPORT INFORMATION
  Report Type: 
  Country: None (occurrence: None)
  Receive Date: 20070327
  Receipt Date: 20070315
  Transmission Date: 20070707
  Serious: Yes (Hospitalization, Other)
  Sender: FDA-Public Use
  Company Number: US-PFIZER INC-2006126140

PATIENT
  Sex: Female

DRUGS (3)
  1. CELEBREX [Suspect]
     Indication: ARTHRITIS
     Dates: start: 20010405, end: 20021214
  2. BEXTRA [Suspect]
  3. VIOXX [Suspect]

REACTIONS (2)
  - DEPRESSION [None]
  - ISCHAEMIC STROKE [None]
